FAERS Safety Report 7522393-9 (Version None)
Quarter: 2011Q2

REPORT INFORMATION
  Report Type: 
  Country: None (occurrence: None)
  Receive Date: 20110603
  Receipt Date: 20110523
  Transmission Date: 20111010
  Serious: Yes (Other)
  Sender: FDA-Public Use
  Company Number: PHHY2011DE44491

PATIENT
  Sex: Female

DRUGS (1)
  1. CLOZAPINE [Suspect]
     Dosage: MATERNAL DOSE: 200MG/DAY
     Route: 064
     Dates: start: 20090101, end: 20100214

REACTIONS (1)
  - FOETAL HEART RATE DECREASED [None]
